FAERS Safety Report 8367457-5 (Version None)
Quarter: 2012Q2

REPORT INFORMATION
  Report Type: 
  Country: None (occurrence: None)
  Receive Date: 20120517
  Receipt Date: 20120217
  Transmission Date: 20120825
  Serious: No
  Sender: FDA-Public Use
  Company Number: US-GLAXOSMITHKLINE-A0966449A

PATIENT
  Age: 72 Year
  Sex: Male
  Weight: 63.6 kg

DRUGS (9)
  1. GINSENG [Concomitant]
  2. BORON [Concomitant]
  3. ADRENAL COMPLEX [Concomitant]
  4. ASCORBIC ACID [Concomitant]
  5. SEROQUEL [Concomitant]
  6. VOTRIENT [Suspect]
     Indication: PRODUCT USED FOR UNKNOWN INDICATION
     Dosage: 800MG PER DAY
     Route: 048
  7. CALCITRIOL [Concomitant]
  8. VITAMIN D [Concomitant]
  9. THYROID [Concomitant]

REACTIONS (6)
  - VOMITING [None]
  - PYREXIA [None]
  - NAUSEA [None]
  - CHILLS [None]
  - DIARRHOEA [None]
  - LABELLED DRUG-FOOD INTERACTION MEDICATION ERROR [None]
